FAERS Safety Report 6831336-2 (Version None)
Quarter: 2010Q3

REPORT INFORMATION
  Report Type: 
  Country: None (occurrence: None)
  Receive Date: 20100712
  Receipt Date: 20100702
  Transmission Date: 20110219
  Serious: Yes (Hospitalization)
  Sender: FDA-Public Use
  Company Number: US-ABBOTT-10P-163-0655312-00

PATIENT
  Sex: Male
  Weight: 75.818 kg

DRUGS (4)
  1. NIASPAN [Suspect]
     Indication: BLOOD CHOLESTEROL INCREASED
     Dosage: EVERY NIGHT
     Dates: start: 20100601
  2. SIMVASTATIN [Concomitant]
     Indication: BLOOD CHOLESTEROL INCREASED
     Dosage: ALTERNATING 80 MG ONE DAY AND 40 MG NEXT DAY
     Dates: start: 20100101
  3. ASPIRIN [Concomitant]
     Indication: PRODUCT USED FOR UNKNOWN INDICATION
  4. ALEVE (CAPLET) [Concomitant]
     Indication: ARTHRITIS
     Dosage: 1 OR 2 TABS DAILY

REACTIONS (5)
  - COUGH [None]
  - FEELING HOT [None]
  - FLUSHING [None]
  - LUNG INFECTION [None]
  - PULMONARY MASS [None]
